FAERS Safety Report 5576606-3 (Version None)
Quarter: 2007Q4

REPORT INFORMATION
  Report Type: 
  Country: None (occurrence: None)
  Receive Date: 20071130
  Receipt Date: 20070914
  Transmission Date: 20080405
  Serious: No
  Sender: FDA-Public Use
  Company Number: US200709003295

PATIENT
  Age: 48 Year
  Sex: Female
  Weight: 98.9 kg

DRUGS (2)
  1. BYETTA [Suspect]
     Indication: TYPE 2 DIABETES MELLITUS
     Dosage: 5 UG, 2/D, SUBCUTANEOUS ; 10 UG, 2/D, SUBCUTANEOUS
     Route: 058
     Dates: start: 20070701, end: 20070801
  2. BYETTA [Suspect]
     Indication: TYPE 2 DIABETES MELLITUS
     Dosage: 5 UG, 2/D, SUBCUTANEOUS ; 10 UG, 2/D, SUBCUTANEOUS
     Route: 058
     Dates: start: 20070801

REACTIONS (16)
  - BLOOD GLUCOSE ABNORMAL [None]
  - BLOOD GLUCOSE DECREASED [None]
  - DECREASED APPETITE [None]
  - DIZZINESS [None]
  - ERUCTATION [None]
  - FEELING ABNORMAL [None]
  - FOOD CRAVING [None]
  - HOT FLUSH [None]
  - HYPERHIDROSIS [None]
  - INCREASED APPETITE [None]
  - MOOD SWINGS [None]
  - NAUSEA [None]
  - THINKING ABNORMAL [None]
  - THIRST [None]
  - TREMOR [None]
  - WEIGHT DECREASED [None]
